FAERS Safety Report 25707387 (Version 2)
Quarter: 2025Q3

REPORT INFORMATION
  Report Type: Report from Study
  Country: CA (occurrence: CA)
  Receive Date: 20250820
  Receipt Date: 20250827
  Transmission Date: 20251021
  Serious: Yes (Death)
  Sender: PFIZER
  Company Number: CA-PFIZER INC-202500164350

PATIENT
  Age: 63 Year
  Sex: Male

DRUGS (3)
  1. HYDROCORTISONE SODIUM SUCCINATE [Suspect]
     Active Substance: HYDROCORTISONE SODIUM SUCCINATE
     Route: 042
  2. PANCURONIUM BROMIDE [Suspect]
     Active Substance: PANCURONIUM BROMIDE
  3. VECURONIUM [Suspect]
     Active Substance: VECURONIUM BROMIDE

REACTIONS (4)
  - Necrotising myositis [Fatal]
  - Blood creatine phosphokinase increased [Fatal]
  - Renal failure [Fatal]
  - Myoglobinuria [Fatal]
